FAERS Safety Report 20127783 (Version 1)
Quarter: 2021Q4

REPORT INFORMATION
  Report Type: Report from Study
  Country: CA (occurrence: CA)
  Receive Date: 20211129
  Receipt Date: 20211129
  Transmission Date: 20220303
  Serious: Yes (Other)
  Sender: FDA-Public Use
  Company Number: CA-OTSUKA-2021_040900

PATIENT
  Age: 58 Year
  Sex: Female

DRUGS (1)
  1. ARIPIPRAZOLE [Suspect]
     Active Substance: ARIPIPRAZOLE
     Indication: Product used for unknown indication
     Dosage: 250 MG Q 4 WEEKS
     Route: 065
     Dates: start: 20211122

REACTIONS (2)
  - Cataract [Unknown]
  - Underdose [Unknown]

NARRATIVE: CASE EVENT DATE: 20211122
